FAERS Safety Report 13183085 (Version 1)
Quarter: 2017Q1

REPORT INFORMATION
  Report Type: Spontaneous
  Country: CA (occurrence: CA)
  Receive Date: 20170203
  Receipt Date: 20170203
  Transmission Date: 20170428
  Serious: Yes (Life-Threatening, Hospitalization)
  Sender: FDA-Public Use
  Company Number: CA-TEVA-735349ACC

PATIENT
  Age: 53 Year
  Sex: Female
  Weight: 75.82 kg

DRUGS (19)
  1. TEVA-INDOMETHACIN [Suspect]
     Active Substance: INDOMETHACIN
     Indication: PAIN IN EXTREMITY
     Route: 048
  2. ATORVASTATIN [Concomitant]
     Active Substance: ATORVASTATIN
  3. CLOPIDOGREL [Concomitant]
     Active Substance: CLOPIDOGREL BISULFATE
  4. IBUPROFEN. [Concomitant]
     Active Substance: IBUPROFEN
  5. ACETAMINOPHEN AND CODEINE [Concomitant]
     Active Substance: ACETAMINOPHEN\CODEINE PHOSPHATE
  6. CHOLECALCIFEROL [Concomitant]
     Active Substance: CHOLECALCIFEROL
  7. DIAZEPAM. [Concomitant]
     Active Substance: DIAZEPAM
  8. DICLOFENAC [Concomitant]
     Active Substance: DICLOFENAC
  9. ENOXAPARIN [Concomitant]
     Active Substance: ENOXAPARIN
  10. RAMIPRIL. [Concomitant]
     Active Substance: RAMIPRIL
  11. LORAZEPAM. [Concomitant]
     Active Substance: LORAZEPAM
  12. THIAMINE HCL [Concomitant]
  13. CALCIPOTRIOL [Concomitant]
     Active Substance: CALCIPOTRIENE
  14. ALLOPURINOL. [Concomitant]
     Active Substance: ALLOPURINOL
  15. ASPIRIN. [Concomitant]
     Active Substance: ASPIRIN
  16. DIMENHYDRINATE. [Concomitant]
     Active Substance: DIMENHYDRINATE
  17. SENNOSIDES. [Concomitant]
     Active Substance: SENNOSIDES
  18. ACETAMINOPHEN. [Concomitant]
     Active Substance: ACETAMINOPHEN
  19. MULTIVITAMIN [Concomitant]
     Active Substance: VITAMINS

REACTIONS (6)
  - Prinzmetal angina [Recovered/Resolved]
  - Dizziness [Recovered/Resolved]
  - Chest pain [Recovered/Resolved]
  - Non-cardiac chest pain [Recovered/Resolved]
  - Myocardial infarction [Recovered/Resolved]
  - Choking sensation [Recovered/Resolved]
